FAERS Safety Report 24306608 (Version 4)
Quarter: 2024Q4

REPORT INFORMATION
  Report Type: Spontaneous
  Country: US (occurrence: US)
  Receive Date: 20240911
  Receipt Date: 20241230
  Transmission Date: 20250115
  Serious: No
  Sender: ROCHE
  Company Number: US-ROCHE-10000073726

PATIENT
  Age: 32 Year
  Sex: Female

DRUGS (1)
  1. XOLAIR [Suspect]
     Active Substance: OMALIZUMAB
     Indication: Urticaria
     Dosage: STRENGTH: 350 MG/2 ML
     Route: 058

REACTIONS (3)
  - Maternal exposure during pregnancy [Unknown]
  - Hypoaesthesia [Unknown]
  - Paraesthesia [Unknown]
